FAERS Safety Report 18717374 (Version 1)
Quarter: 2021Q1

REPORT INFORMATION
  Report Type: Spontaneous
  Country: US (occurrence: US)
  Receive Date: 20210107
  Receipt Date: 20210107
  Transmission Date: 20210419
  Serious: No
  Sender: FDA-Public Use
  Company Number: None

PATIENT
  Age: 27 Year
  Sex: Male

DRUGS (1)
  1. RISPERIDONE (RISPERIDONE 2MG TAB) [Suspect]
     Active Substance: RISPERIDONE
     Indication: SCHIZOPHRENIA
     Route: 048
     Dates: start: 20191227, end: 20191228

REACTIONS (1)
  - Dystonia [None]

NARRATIVE: CASE EVENT DATE: 20191228
